FAERS Safety Report 6087682-6 (Version None)
Quarter: 2009Q1

REPORT INFORMATION
  Report Type: 
  Country: None (occurrence: None)
  Receive Date: 20090223
  Receipt Date: 20090209
  Transmission Date: 20090719
  Serious: Yes (Hospitalization)
  Sender: FDA-Public Use
  Company Number: FR-ROCHE-613524

PATIENT
  Sex: Male

DRUGS (8)
  1. PEG-INTERFERON ALFA 2A (RO 25-8310) [Suspect]
     Route: 058
     Dates: start: 20081124, end: 20081208
  2. PEG-INTERFERON ALFA 2A (RO 25-8310) [Suspect]
     Route: 058
     Dates: start: 20081208, end: 20081215
  3. RIBAVIRIN [Suspect]
     Route: 048
     Dates: start: 20081124, end: 20081215
  4. PLACEBO [Suspect]
     Indication: THROMBOCYTOPENIA
     Route: 048
     Dates: start: 20081124, end: 20081215
  5. ELTROMBOPAG [Suspect]
     Indication: THROMBOCYTOPENIA
     Route: 048
     Dates: start: 20080925, end: 20081001
  6. ELTROMBOPAG [Suspect]
     Route: 048
     Dates: start: 20081023, end: 20081107
  7. ELTROMBOPAG [Suspect]
     Route: 048
     Dates: start: 20081108, end: 20081121
  8. PROPOFOL [Concomitant]

REACTIONS (1)
  - ASCITES [None]
